FAERS Safety Report 26122929 (Version 1)
Quarter: 2025Q4

REPORT INFORMATION
  Report Type: Spontaneous
  Country: CN (occurrence: CN)
  Receive Date: 20251204
  Receipt Date: 20251204
  Transmission Date: 20260118
  Serious: Yes (Other)
  Sender: PFIZER
  Company Number: CN-PFIZER INC-202500234453

PATIENT
  Age: 76 Year
  Sex: Female
  Weight: 30 kg

DRUGS (1)
  1. ZYVOX [Suspect]
     Active Substance: LINEZOLID
     Indication: Wound infection
     Dosage: 600 MG, 2X/DAY

REACTIONS (3)
  - Fungal test positive [Unknown]
  - Oral candidiasis [Unknown]
  - Angular cheilitis [Unknown]
